FAERS Safety Report 6491072-1 (Version None)
Quarter: 2009Q4

REPORT INFORMATION
  Report Type: 
  Country: None (occurrence: None)
  Receive Date: 20091211
  Receipt Date: 20091126
  Transmission Date: 20100525
  Serious: Yes (Life-Threatening)
  Sender: FDA-Public Use
  Company Number: JP-GENENTECH-295342

PATIENT
  Sex: Female

DRUGS (3)
  1. AVASTIN [Suspect]
     Indication: COLON CANCER
     Dosage: 200 MG, QD
     Route: 041
     Dates: start: 20090728, end: 20090917
  2. FLUOROURACIL [Suspect]
     Indication: COLON CANCER
     Dosage: 500 MG, Q2W
     Route: 040
     Dates: start: 20090709, end: 20091105
  3. CALCIUM LEVOFOLINATE [Concomitant]
     Indication: DRUG USE FOR UNKNOWN INDICATION
     Dosage: UNK
     Dates: start: 20090709, end: 20091105

REACTIONS (1)
  - VENTRICULAR EXTRASYSTOLES [None]
